FAERS Safety Report 20817967 (Version 2)
Quarter: 2022Q2

REPORT INFORMATION
  Report Type: Spontaneous
  Country: DE (occurrence: DE)
  Receive Date: 20220512
  Receipt Date: 20220601
  Transmission Date: 20220721
  Serious: Yes (Life-Threatening, Hospitalization, Other)
  Sender: FDA-Public Use
  Company Number: DE-BoehringerIngelheim-2022-BI-170019

PATIENT
  Age: 77 Year
  Sex: Male

DRUGS (9)
  1. JARDIANCE [Suspect]
     Active Substance: EMPAGLIFLOZIN
     Indication: Type 2 diabetes mellitus
     Route: 048
     Dates: end: 20211109
  2. ATORVASTATIN [Concomitant]
     Active Substance: ATORVASTATIN
     Indication: Product used for unknown indication
  3. PANTOZOL [Concomitant]
     Active Substance: PANTOPRAZOLE SODIUM
     Indication: Product used for unknown indication
  4. ASPIRIN [Concomitant]
     Active Substance: ASPIRIN
     Indication: Product used for unknown indication
  5. MTX 7.5 [Concomitant]
     Indication: Product used for unknown indication
  6. Ramipril 1.25 [Concomitant]
     Indication: Product used for unknown indication
  7. Metoprolol 23.25 [Concomitant]
     Indication: Product used for unknown indication
  8. Xylometazolin 10mg [Concomitant]
     Indication: Product used for unknown indication
  9. Heparin 5000 IU [Concomitant]
     Indication: Product used for unknown indication

REACTIONS (3)
  - Aortic valve replacement [Recovered/Resolved]
  - Atrial appendage resection [Recovered/Resolved]
  - Ketoacidosis [Recovered/Resolved]

NARRATIVE: CASE EVENT DATE: 20211109
